FAERS Safety Report 9044542 (Version 1)
Quarter: 2013Q1

REPORT INFORMATION
  Report Type: Report from Study
  Country: US (occurrence: US)
  Receive Date: 20130130
  Receipt Date: 20130130
  Transmission Date: 20140127
  Serious: No
  Sender: FDA-Public Use
  Company Number: US-ABBOTT-12P-163-0956494-00

PATIENT
  Age: 29 Year
  Sex: Female
  Weight: 72.64 kg

DRUGS (4)
  1. HUMIRA 40 MG/0.8 ML PEN [Suspect]
     Indication: CROHN^S DISEASE
     Dosage: 160 MILLIGRAM LOADING DOSE
     Dates: start: 20120703
  2. LAMICTAL [Concomitant]
     Indication: CROHN^S DISEASE
  3. PREDNISONE [Concomitant]
     Indication: CROHN^S DISEASE
  4. ASACOL [Concomitant]
     Indication: CROHN^S DISEASE

REACTIONS (2)
  - Contusion [Not Recovered/Not Resolved]
  - Contusion [Not Recovered/Not Resolved]
